FAERS Safety Report 4561076-4 (Version None)
Quarter: 2005Q1

REPORT INFORMATION
  Report Type: 
  Country: None (occurrence: None)
  Receive Date: 20050126
  Receipt Date: 20041129
  Transmission Date: 20050727
  Serious: Yes (Other)
  Sender: FDA-Public Use
  Company Number: US-BRISTOL-MYERS SQUIBB COMPANY-12777751

PATIENT
  Age: 59 Year
  Sex: Female
  Weight: 145 kg

DRUGS (6)
  1. GLUCOPHAGE [Suspect]
     Indication: DIABETES MELLITUS INSULIN-DEPENDENT
     Route: 048
  2. GLUCOPHAGE [Suspect]
     Indication: OBESITY
     Route: 048
  3. HUMULIN N [Concomitant]
  4. THYROID TAB [Concomitant]
  5. AVANDIA [Concomitant]
  6. VITAMINS + MINERALS [Concomitant]

REACTIONS (3)
  - DYSKINESIA [None]
  - LACTIC ACIDOSIS [None]
  - PALPITATIONS [None]
